FAERS Safety Report 19996573 (Version 1)
Quarter: 2021Q4

REPORT INFORMATION
  Report Type: Other
  Country: US (occurrence: US)
  Receive Date: 20211026
  Receipt Date: 20211026
  Transmission Date: 20220303
  Serious: Yes (Hospitalization)
  Sender: FDA-Public Use
  Company Number: US-ORBION PHARMACEUTICALS PRIVATE LIMITED-2120999

PATIENT
  Age: 41 Year
  Sex: Male

DRUGS (2)
  1. AMLODIPINE BESYLATE [Suspect]
     Active Substance: AMLODIPINE BESYLATE
     Route: 065
  2. ALCOHOL [Concomitant]
     Active Substance: ALCOHOL
     Route: 065

REACTIONS (3)
  - Intentional overdose [Recovering/Resolving]
  - Cardiogenic shock [Recovering/Resolving]
  - Acute kidney injury [Recovering/Resolving]
